FAERS Safety Report 5661155-4 (Version None)
Quarter: 2008Q1

REPORT INFORMATION
  Report Type: 
  Country: None (occurrence: None)
  Receive Date: 20080306
  Receipt Date: 20080211
  Transmission Date: 20080703
  Serious: Yes (Other)
  Sender: FDA-Public Use
  Company Number: 2008US-13258

PATIENT
  Age: 77 Year
  Sex: Female

DRUGS (2)
  1. TOPIRAMATE [Suspect]
     Indication: DEPRESSION
     Dosage: 200 MG, QD, ORAL
     Route: 048
  2. SERTRALINE UNKNOWN [Concomitant]

REACTIONS (2)
  - DEMENTIA [None]
  - DISORIENTATION [None]
